FAERS Safety Report 8917441 (Version 1)
Quarter: 2012Q4

REPORT INFORMATION
  Report Type: 
  Country: US (occurrence: US)
  Receive Date: 20121120
  Receipt Date: 20121120
  Transmission Date: 20130627
  Serious: Yes (Other)
  Sender: FDA-Public Use
  Company Number: US-PFIZER INC-2012287418

PATIENT
  Age: 53 Year
  Sex: Male
  Weight: 104.3 kg

DRUGS (7)
  1. LYRICA [Suspect]
     Indication: NEUROPATHY
     Dosage: 225 mg (three capsules of 75mg), 3x/day
     Route: 048
     Dates: end: 201209
  2. TRAMADOL [Concomitant]
     Dosage: UNK
  3. LISINOPRIL [Concomitant]
     Dosage: UNK
  4. CARVEDILOL [Concomitant]
     Indication: BLOOD PRESSURE HIGH
     Dosage: 6.25 mg, 2x/day
  5. OMEPRAZOLE [Concomitant]
     Dosage: 20 mg, 1x/day
  6. AMITRIPTYLINE [Concomitant]
     Dosage: 50 mg, 2x/day
  7. XANAX [Concomitant]
     Indication: PSYCHOTIC DISORDER
     Dosage: UNK

REACTIONS (8)
  - Fall [Unknown]
  - Motor dysfunction [Not Recovered/Not Resolved]
  - Gait disturbance [Not Recovered/Not Resolved]
  - Hypoaesthesia [Not Recovered/Not Resolved]
  - Hyperaesthesia [Not Recovered/Not Resolved]
  - Withdrawal syndrome [Not Recovered/Not Resolved]
  - Grip strength decreased [Not Recovered/Not Resolved]
  - Incorrect dose administered [Unknown]
